FAERS Safety Report 11937865 (Version 1)
Quarter: 2016Q1

REPORT INFORMATION
  Report Type: Spontaneous
  Country: US (occurrence: US)
  Receive Date: 20160122
  Receipt Date: 20160122
  Transmission Date: 20160526
  Serious: Yes (Other)
  Sender: FDA-Public Use
  Company Number: US-TEVA-627661ACC

PATIENT
  Age: 36 Year
  Sex: Female
  Weight: 125.76 kg

DRUGS (3)
  1. FERIVA [Concomitant]
     Active Substance: ASCORBIC ACID\BIOTIN\CYANOCOBALAMIN\FERROUS BISGLYCINATE\FOLIC ACID
  2. PHENTERMINE. [Concomitant]
     Active Substance: PHENTERMINE
  3. PARAGARD T 380A [Suspect]
     Active Substance: COPPER
     Indication: CONTRACEPTION
     Dates: start: 20151007, end: 20151104

REACTIONS (1)
  - Device dislocation [Recovered/Resolved]

NARRATIVE: CASE EVENT DATE: 20151104
